FAERS Safety Report 18158029 (Version 1)
Quarter: 2020Q3

REPORT INFORMATION
  Report Type: Spontaneous
  Country: US (occurrence: US)
  Receive Date: 20200817
  Receipt Date: 20200817
  Transmission Date: 20201103
  Serious: No
  Sender: FDA-Public Use
  Company Number: US-MEDEXUS PHARMA, INC.-2020MED00052

PATIENT
  Age: 67 Year
  Sex: Female
  Weight: 89.8 kg

DRUGS (1)
  1. RASUVO [Suspect]
     Active Substance: METHOTREXATE SODIUM
     Dosage: 12.5 MG, INJECTED INTO THIGH
     Dates: start: 202002

REACTIONS (3)
  - Scratch [Recovered/Resolved]
  - Accidental exposure to product [Recovered/Resolved]
  - Device failure [Recovered/Resolved]

NARRATIVE: CASE EVENT DATE: 202003
